FAERS Safety Report 22232862 (Version 1)
Quarter: 2023Q2

REPORT INFORMATION
  Report Type: Spontaneous
  Country: JP (occurrence: JP)
  Receive Date: 20230420
  Receipt Date: 20230420
  Transmission Date: 20230721
  Serious: Yes (Other)
  Sender: FDA-Public Use
  Company Number: JP-Accord-309129

PATIENT
  Age: 78 Year
  Sex: Female

DRUGS (1)
  1. IBANDRONATE SODIUM [Suspect]
     Active Substance: IBANDRONATE SODIUM
     Indication: Osteoporosis
     Dosage: 29 INTRAVENOUS INJECTIONS OF IBANDRONATE (ONCE/MONTH) DURING THE PAST 2.5 YEARS, RECEIVED HIGH DOSE
     Dates: start: 2017

REACTIONS (3)
  - Osteonecrosis of jaw [Recovered/Resolved]
  - Actinomycosis [Recovered/Resolved]
  - Apical granuloma [Recovered/Resolved]

NARRATIVE: CASE EVENT DATE: 20190101
